FAERS Safety Report 19179296 (Version 1)
Quarter: 2021Q2

REPORT INFORMATION
  Report Type: Spontaneous
  Country: US (occurrence: US)
  Receive Date: 20210426
  Receipt Date: 20210426
  Transmission Date: 20210717
  Serious: No
  Sender: FDA-Public Use
  Company Number: US-IPSEN BIOPHARMACEUTICALS, INC.-2021-10049

PATIENT
  Age: 53 Year
  Sex: Female

DRUGS (4)
  1. RESTYLANE REFYNE [Suspect]
     Active Substance: HYALURONIC ACID\LIDOCAINE
     Indication: SKIN WRINKLING
     Route: 065
     Dates: start: 20210319
  2. DYSPORT [Suspect]
     Active Substance: ABOBOTULINUMTOXINA
     Indication: OFF LABEL USE
  3. DYSPORT [Suspect]
     Active Substance: ABOBOTULINUMTOXINA
     Indication: SKIN WRINKLING
     Dosage: 138 UNITS
     Route: 065
     Dates: start: 20210319, end: 20210319
  4. DYSPORT [Suspect]
     Active Substance: ABOBOTULINUMTOXINA
     Indication: SKIN WRINKLING

REACTIONS (2)
  - Lip disorder [Unknown]
  - Off label use [Unknown]

NARRATIVE: CASE EVENT DATE: 2021
